FAERS Safety Report 26046291 (Version 1)
Quarter: 2025Q4

REPORT INFORMATION
  Report Type: Spontaneous
  Country: CN (occurrence: CN)
  Receive Date: 20251114
  Receipt Date: 20251114
  Transmission Date: 20260118
  Serious: Yes (Other)
  Sender: ABBVIE
  Company Number: CN-TAKEDA-2025TUS099538

PATIENT
  Age: 46 Year
  Sex: Female
  Weight: 60 kg

DRUGS (1)
  1. ENANTONE LP [Suspect]
     Active Substance: LEUPROLIDE ACETATE
     Indication: Neoplasm malignant
     Dosage: 11.25 MILLIGRAM, QD
     Route: 058
     Dates: start: 20251020, end: 20251020

REACTIONS (2)
  - Myelosuppression [Unknown]
  - Liver injury [Unknown]

NARRATIVE: CASE EVENT DATE: 20251030
